FAERS Safety Report 7947617 (Version 2)
Quarter: 2012Q4

REPORT INFORMATION
  Report Type: 
  Country: US (occurrence: US)
  Receive Date: 20110517
  Receipt Date: 20120830
  Transmission Date: 20130627
  Serious: Yes (Hospitalization, Other)
  Sender: FDA-Public Use
  Company Number: US-US-EMD SERONO, INC.-7058738

PATIENT
  Age: 55 Year
  Sex: Female

DRUGS (1)
  1. REBIF [Suspect]
     Indication: MULTIPLE SCLEROSIS
     Route: 058
     Dates: start: 20020508, end: 201110

REACTIONS (7)
  - Optic neuritis [Not Recovered/Not Resolved]
  - Glaucoma [Not Recovered/Not Resolved]
  - Conjunctivitis [Recovering/Resolving]
  - Conjunctival disorder [Unknown]
  - Gait disturbance [Unknown]
  - Fall [Unknown]
  - Central nervous system lesion [Unknown]
